FAERS Safety Report 7373553-1 (Version None)
Quarter: 2011Q1

REPORT INFORMATION
  Report Type: 
  Country: None (occurrence: None)
  Receive Date: 20110325
  Receipt Date: 20110316
  Transmission Date: 20110831
  Serious: No
  Sender: FDA-Public Use
  Company Number: US-BIOGENIDEC-2011BI010161

PATIENT
  Sex: Female

DRUGS (1)
  1. AVONEX [Suspect]
     Indication: MULTIPLE SCLEROSIS
     Route: 030
     Dates: start: 20090220

REACTIONS (7)
  - MEMORY IMPAIRMENT [None]
  - TINNITUS [None]
  - EAR CONGESTION [None]
  - TOOTH FRACTURE [None]
  - PAIN IN JAW [None]
  - HEADACHE [None]
  - BRUXISM [None]
